FAERS Safety Report 13346031 (Version 1)
Quarter: 2017Q1

REPORT INFORMATION
  Report Type: Spontaneous
  Country: US (occurrence: US)
  Receive Date: 20170317
  Receipt Date: 20170317
  Transmission Date: 20170428
  Serious: No
  Sender: FDA-Public Use
  Company Number: US-DEPOMED, INC.-US-2016DEP011516

PATIENT

DRUGS (2)
  1. GRALISE [Suspect]
     Active Substance: GABAPENTIN
     Indication: NERVOUS SYSTEM DISORDER
     Dosage: 600 MG, QD
     Route: 048
     Dates: start: 20160713, end: 20160715
  2. GRALISE [Suspect]
     Active Substance: GABAPENTIN
     Dosage: 300, 600 MG ONCE A DAY
     Route: 048
     Dates: start: 20160715

REACTIONS (5)
  - Insomnia [Not Recovered/Not Resolved]
  - Drug administration error [Recovered/Resolved]
  - Drug ineffective [Not Recovered/Not Resolved]
  - Off label use [Not Recovered/Not Resolved]
  - Drug dose titration not performed [Not Recovered/Not Resolved]

NARRATIVE: CASE EVENT DATE: 20160713
